FAERS Safety Report 5918680-8 (Version None)
Quarter: 2008Q4

REPORT INFORMATION
  Report Type: 
  Country: None (occurrence: None)
  Receive Date: 20081015
  Receipt Date: 20080602
  Transmission Date: 20090506
  Serious: No
  Sender: FDA-Public Use
  Company Number: US-ASTRAZENECA-2008UW11044

PATIENT
  Age: 76 Year
  Sex: Male
  Weight: 90.7 kg

DRUGS (5)
  1. SYMBICORT [Suspect]
     Indication: CHRONIC OBSTRUCTIVE PULMONARY DISEASE
     Dosage: 80/4.5 MG 2 PUFFS BID
     Route: 055
     Dates: start: 20080201
  2. AMLODIPINE [Concomitant]
  3. LIPITOR [Concomitant]
  4. COMBIVENT [Concomitant]
  5. LEVOXYL [Concomitant]

REACTIONS (3)
  - DRY EYE [None]
  - DRY MOUTH [None]
  - HEADACHE [None]
